FAERS Safety Report 19074475 (Version 1)
Quarter: 2021Q1

REPORT INFORMATION
  Report Type: Spontaneous
  Country: FR (occurrence: FR)
  Receive Date: 20210330
  Receipt Date: 20210330
  Transmission Date: 20210420
  Serious: Yes (Other)
  Sender: FDA-Public Use
  Company Number: FR-PFIZER INC-2021309274

PATIENT
  Age: 16 Year
  Sex: Female

DRUGS (1)
  1. LYRICA [Suspect]
     Active Substance: PREGABALIN
     Dosage: 6 DF
     Route: 048

REACTIONS (4)
  - Drug abuse [Unknown]
  - Euphoric mood [Recovered/Resolved]
  - Alcohol poisoning [Recovered/Resolved]
  - Off label use [Unknown]
